FAERS Safety Report 7340571-9 (Version None)
Quarter: 2011Q1

REPORT INFORMATION
  Report Type: 
  Country: None (occurrence: None)
  Receive Date: 20110309
  Receipt Date: 20110224
  Transmission Date: 20110831
  Serious: Yes (Other)
  Sender: FDA-Public Use
  Company Number: PHHY2011AR12253

PATIENT
  Sex: Female

DRUGS (3)
  1. CHLORPROMAZINE [Concomitant]
  2. ZIPRASIDONE [Concomitant]
  3. CLOZAPINE [Suspect]
     Dosage: 100 MG, UNK
     Dates: start: 20110215

REACTIONS (7)
  - DYSARTHRIA [None]
  - SOMNOLENCE [None]
  - MOBILITY DECREASED [None]
  - APRAXIA [None]
  - WHITE BLOOD CELL COUNT INCREASED [None]
  - NEUTROPHIL COUNT INCREASED [None]
  - ACCIDENTAL EXPOSURE [None]
